FAERS Safety Report 4417273-1 (Version None)
Quarter: 2004Q3

REPORT INFORMATION
  Report Type: 
  Country: None (occurrence: None)
  Receive Date: 20040806
  Receipt Date: 20040713
  Transmission Date: 20050211
  Serious: Yes (Life-Threatening)
  Sender: FDA-Public Use
  Company Number: JP-GLAXOSMITHKLINE-B0339145A

PATIENT
  Age: 83 Year
  Sex: Female
  Weight: 40 kg

DRUGS (8)
  1. ZOVIRAX [Suspect]
     Indication: HERPES ZOSTER
     Dosage: 250MG TWICE PER DAY
     Route: 042
     Dates: start: 20040528, end: 20040601
  2. CARVEDILOL [Suspect]
     Indication: HYPERTENSION
     Dosage: 5MG PER DAY
     Route: 048
     Dates: end: 20040605
  3. DIOVAN [Suspect]
     Indication: HYPERTENSION
     Dosage: 10MG PER DAY
     Route: 048
     Dates: end: 20040605
  4. NORVASC [Suspect]
     Indication: HYPERTENSION
     Dosage: 2.5MG PER DAY
     Route: 048
     Dates: end: 20040605
  5. DIART [Concomitant]
     Indication: CARDIAC FAILURE
     Dosage: 15MG PER DAY
     Route: 048
  6. MARZULENE [Concomitant]
     Indication: GASTRITIS
     Dosage: 1.34G PER DAY
     Route: 048
  7. CYANOCOBALAMIN [Concomitant]
     Indication: NEURALGIA
     Dosage: 1000MCG PER DAY
     Route: 048
     Dates: start: 20040601
  8. KAMAG G [Concomitant]
     Indication: CONSTIPATION
     Dosage: 2G PER DAY
     Route: 048
     Dates: start: 20040604

REACTIONS (2)
  - BLOOD PRESSURE DECREASED [None]
  - DRUG INTERACTION [None]
